FAERS Safety Report 11820181 (Version 1)
Quarter: 2015Q4

REPORT INFORMATION
  Report Type: Spontaneous
  Country: CH (occurrence: CH)
  Receive Date: 20151210
  Receipt Date: 20151210
  Transmission Date: 20160305
  Serious: Yes (Hospitalization)
  Sender: FDA-Public Use
  Company Number: CH-ASTRAZENECA-2015SF21136

PATIENT
  Age: 20672 Day
  Sex: Male

DRUGS (7)
  1. ATACAND PLUS [Suspect]
     Active Substance: CANDESARTAN CILEXETIL\HYDROCHLOROTHIAZIDE
     Route: 048
     Dates: start: 201506, end: 20150901
  2. CANDESARTAN [Concomitant]
     Active Substance: CANDESARTAN
  3. TEMESTA [Concomitant]
     Active Substance: LORAZEPAM
     Route: 048
  4. JAKAFI [Concomitant]
     Active Substance: RUXOLITINIB
     Route: 048
     Dates: start: 201501
  5. ACIDE FOLIQUE [Concomitant]
     Active Substance: FOLIC ACID
     Route: 048
  6. MEPHANOL [Concomitant]
     Active Substance: ALLOPURINOL
  7. LITALIR [Suspect]
     Active Substance: HYDROXYUREA
     Route: 048

REACTIONS (1)
  - Gout [Recovered/Resolved]

NARRATIVE: CASE EVENT DATE: 20150831
